FAERS Safety Report 6655422-5 (Version None)
Quarter: 2010Q1

REPORT INFORMATION
  Report Type: 
  Country: None (occurrence: None)
  Receive Date: 20100329
  Receipt Date: 20100225
  Transmission Date: 20100710
  Serious: No
  Sender: FDA-Public Use
  Company Number: US-BAYER-201012576BCC

PATIENT
  Age: 37 Year
  Sex: Female

DRUGS (1)
  1. ALEVE [Suspect]
     Indication: DRUG USE FOR UNKNOWN INDICATION
     Route: 048

REACTIONS (5)
  - HYPERSENSITIVITY [None]
  - NERVOUSNESS [None]
  - OEDEMA PERIPHERAL [None]
  - PARAESTHESIA [None]
  - SWELLING FACE [None]
